FAERS Safety Report 7888358-2 (Version None)
Quarter: 2011Q4

REPORT INFORMATION
  Report Type: 
  Country: None (occurrence: None)
  Receive Date: 20111103
  Receipt Date: 20111027
  Transmission Date: 20120403
  Serious: Yes (Other)
  Sender: FDA-Public Use
  Company Number: US-SANOFI-AVENTIS-2011SA071073

PATIENT
  Age: 46 Year
  Sex: Male

DRUGS (1)
  1. ZOLPIDEM TARTRATE [Suspect]
     Route: 048

REACTIONS (2)
  - ROAD TRAFFIC ACCIDENT [None]
  - OVERDOSE [None]
